FAERS Safety Report 6434797-6 (Version None)
Quarter: 2009Q4

REPORT INFORMATION
  Report Type: 
  Country: None (occurrence: None)
  Receive Date: 20091110
  Receipt Date: 20091029
  Transmission Date: 20100525
  Serious: No
  Sender: FDA-Public Use
  Company Number: US-B.I. PHARMACEUTICALS,INC./RIDGEFIELD-2009-BP-12717BP

PATIENT
  Sex: Male

DRUGS (3)
  1. ZANTAC 75 [Suspect]
     Indication: ULCER
     Dosage: 150 MG
     Route: 048
     Dates: start: 20091021
  2. PEPTOBISMOL [Suspect]
     Indication: ULCER
     Dates: start: 20091021
  3. FLOMAX [Concomitant]
     Indication: PROSTATOMEGALY

REACTIONS (1)
  - FAECES DISCOLOURED [None]
